FAERS Safety Report 15988471 (Version 1)
Quarter: 2019Q1

REPORT INFORMATION
  Report Type: Spontaneous
  Country: PL (occurrence: PL)
  Receive Date: 20190221
  Receipt Date: 20190221
  Transmission Date: 20190418
  Serious: Yes (Life-Threatening, Other)
  Sender: FDA-Public Use
  Company Number: PL-ACCORD-067485

PATIENT
  Age: 74 Year
  Sex: Female

DRUGS (8)
  1. OMEPRAZOLE. [Concomitant]
     Active Substance: OMEPRAZOLE
  2. POTASSIUM CHLORIDE. [Concomitant]
     Active Substance: POTASSIUM CHLORIDE
  3. TIMONACIC/TIMONACIC ARGININE [Concomitant]
  4. 4-METHOXYCARBONYLTHIAZOLIDINIU/4-METHOXYCARBONYLTHIAZOLIDINIU [Concomitant]
  5. CARBOPLATIN. [Suspect]
     Active Substance: CARBOPLATIN
     Indication: SQUAMOUS CELL CARCINOMA OF LUNG
     Dates: start: 201610, end: 201701
  6. PACLITAXEL/PACLITAXEL LIPOSOME [Suspect]
     Active Substance: PACLITAXEL
     Indication: SQUAMOUS CELL CARCINOMA OF LUNG
     Dates: start: 201610, end: 201701
  7. PEMETREXED. [Suspect]
     Active Substance: PEMETREXED
     Indication: SQUAMOUS CELL CARCINOMA OF LUNG
     Dates: start: 201705, end: 2017
  8. NADROPARIN [Concomitant]
     Active Substance: NADROPARIN

REACTIONS (6)
  - Subacute cutaneous lupus erythematosus [Recovered/Resolved]
  - Toxicity to various agents [None]
  - Drug ineffective [Unknown]
  - Cushingoid [None]
  - Neutropenia [Recovered/Resolved]
  - Skin exfoliation [None]

NARRATIVE: CASE EVENT DATE: 201705
